FAERS Safety Report 8295471-7 (Version None)
Quarter: 2012Q2

REPORT INFORMATION
  Report Type: 
  Country: None (occurrence: None)
  Receive Date: 20120418
  Receipt Date: 20120210
  Transmission Date: 20120825
  Serious: Yes (Hospitalization)
  Sender: FDA-Public Use
  Company Number: US-ASTRAZENECA-2012SE09220

PATIENT
  Age: 68 Year
  Sex: Female

DRUGS (2)
  1. IP PANDANTOPRAZOLE [Concomitant]
  2. NEXIUM [Suspect]
     Route: 048

REACTIONS (4)
  - DYSPEPSIA [None]
  - VOMITING [None]
  - BURN OESOPHAGEAL [None]
  - APHONIA [None]
